FAERS Safety Report 8923981 (Version 1)
Quarter: 2012Q4

REPORT INFORMATION
  Report Type: Spontaneous
  Country: ES (occurrence: None)
  Receive Date: 20121116
  Receipt Date: 20121116
  Transmission Date: 20130627
  Serious: Yes (Hospitalization)
  Sender: FDA-Public Use
  Company Number: 1491629

PATIENT
  Age: 58 Year
  Sex: Male

DRUGS (10)
  1. GEMCITABINE HYDROCHLORIDE [Suspect]
     Indication: LARGE CELL LUNG CANCER
     Dosage: (not otherwise specified)
     Route: 042
  2. GEMCITABINE HYDROCHLORIDE [Suspect]
     Indication: BONE METASTASES
     Dosage: (not otherwise specified)
     Route: 042
  3. GEMCITABINE HYDROCHLORIDE [Suspect]
     Indication: LARGE CELL LUNG CANCER
     Dosage: (not otherwise specified))
     Route: 042
  4. GEMCITABINE HYDROCHLORIDE [Suspect]
     Indication: BONE METASTASES
     Dosage: (not otherwise specified))
     Route: 042
  5. CISPLATIN [Suspect]
     Dosage: (not otherwise specified))
     Route: 042
  6. CISPLATIN [Suspect]
     Dosage: (not otherwise specified))
     Route: 042
  7. CISPLATIN [Suspect]
     Dosage: (not otherwise specified))
     Route: 042
  8. CISPLATIN [Suspect]
     Dosage: (not otherwise specified))
     Route: 042
  9. (HEPARIN LAW) [Concomitant]
  10. BISPHOSPHONATES [Concomitant]

REACTIONS (4)
  - Cerebral infarction [None]
  - Factor V Leiden mutation [None]
  - Bradyphrenia [None]
  - Hemianopia homonymous [None]
